FAERS Safety Report 8305928-8 (Version None)
Quarter: 2012Q2

REPORT INFORMATION
  Report Type: 
  Country: None (occurrence: None)
  Receive Date: 20120423
  Receipt Date: 20120416
  Transmission Date: 20120825
  Serious: Yes (Hospitalization)
  Sender: FDA-Public Use
  Company Number: FR-B.I. PHARMACEUTICALS,INC./RIDGEFIELD-2012-FF-00464FF

PATIENT
  Age: 88 Year
  Sex: Female

DRUGS (6)
  1. AMITRIPTYLINE HCL [Suspect]
     Route: 048
     Dates: end: 20120112
  2. VASTAREL [Suspect]
     Route: 048
     Dates: end: 20120112
  3. ATHYMIL [Suspect]
     Indication: DEPRESSION
     Dosage: 10 MG
     Route: 048
     Dates: end: 20120112
  4. LORAZEPAM [Suspect]
     Dosage: 2.5 MG
     Route: 048
  5. MICARDIS HCT [Suspect]
     Dosage: 80MG/12.5MG
     Route: 048
     Dates: end: 20120112
  6. ZOLPIDEM TARTRATE [Suspect]
     Indication: INSOMNIA
     Route: 048
     Dates: end: 20120112

REACTIONS (2)
  - RHABDOMYOLYSIS [None]
  - FALL [None]
